FAERS Safety Report 20866658 (Version 2)
Quarter: 2022Q3

REPORT INFORMATION
  Report Type: Report from Study
  Country: US (occurrence: US)
  Receive Date: 20220524
  Receipt Date: 20220825
  Transmission Date: 20221027
  Serious: Yes (Hospitalization)
  Sender: FDA-Public Use
  Company Number: US-Zogenix International Limited, A wholly owned subsidiary of Zogenix, Inc.-2022ZX000551

PATIENT
  Age: 5 Year
  Sex: Male

DRUGS (2)
  1. FINTEPLA [Suspect]
     Active Substance: FENFLURAMINE
     Indication: Product used for unknown indication
     Route: 048
     Dates: start: 20200909
  2. FINTEPLA [Suspect]
     Active Substance: FENFLURAMINE
     Dosage: 2 ML EVERY MORNING AND 2.5 ML AT BEDTIME
     Route: 048

REACTIONS (2)
  - Cellulitis [Recovering/Resolving]
  - Seizure [Not Recovered/Not Resolved]

NARRATIVE: CASE EVENT DATE: 20220404
